FAERS Safety Report 7038333-5 (Version None)
Quarter: 2010Q4

REPORT INFORMATION
  Report Type: 
  Country: None (occurrence: None)
  Receive Date: 20101011
  Receipt Date: 20091102
  Transmission Date: 20110411
  Serious: No
  Sender: FDA-Public Use
  Company Number: US-PFIZER INC-2009271643

PATIENT
  Sex: Male
  Weight: 107.95 kg

DRUGS (3)
  1. NEURONTIN [Suspect]
     Indication: FIBROMYALGIA
     Dosage: UNK
     Route: 048
     Dates: start: 20050101, end: 20050101
  2. FENTANYL [Concomitant]
     Dosage: UNK
  3. EFFEXOR [Concomitant]
     Dosage: UNK

REACTIONS (1)
  - DRUG INEFFECTIVE [None]
